FAERS Safety Report 18115511 (Version 1)
Quarter: 2020Q3

REPORT INFORMATION
  Report Type: Spontaneous
  Country: US (occurrence: US)
  Receive Date: 20200805
  Receipt Date: 20200805
  Transmission Date: 20201103
  Serious: No
  Sender: FDA-Public Use
  Company Number: US-ASTRAZENECA-2020SE95941

PATIENT
  Age: 54 Year
  Sex: Female

DRUGS (2)
  1. FARXIGA [Suspect]
     Active Substance: DAPAGLIFLOZIN PROPANEDIOL
     Indication: DIABETES MELLITUS
     Route: 048
     Dates: start: 2017
  2. BRILINTA [Suspect]
     Active Substance: TICAGRELOR
     Indication: STENT PLACEMENT
     Route: 048
     Dates: start: 201911, end: 20200214

REACTIONS (4)
  - Chest pain [Not Recovered/Not Resolved]
  - Product administration error [Unknown]
  - Intentional product misuse [Unknown]
  - Manufacturing product shipping issue [Unknown]

NARRATIVE: CASE EVENT DATE: 202007
